FAERS Safety Report 6481491-1 (Version None)
Quarter: 2009Q4

REPORT INFORMATION
  Report Type: 
  Country: None (occurrence: None)
  Receive Date: 20091123
  Receipt Date: 20090924
  Transmission Date: 20100525
  Serious: No
  Sender: FDA-Public Use
  Company Number: 8048717

PATIENT
  Age: 26 Year
  Sex: Male

DRUGS (1)
  1. CIMZIA [Suspect]
     Indication: CROHN'S DISEASE
     Dosage: 400 MG /M SC
     Route: 058
     Dates: start: 20080906

REACTIONS (7)
  - ABNORMAL DREAMS [None]
  - BLOOD IRON DECREASED [None]
  - CONSTIPATION [None]
  - FATIGUE [None]
  - HAEMATOCHEZIA [None]
  - MUSCLE SPASMS [None]
  - SOMNOLENCE [None]
